FAERS Safety Report 23067337 (Version 1)
Quarter: 2023Q4

REPORT INFORMATION
  Report Type: Spontaneous
  Country: US (occurrence: US)
  Receive Date: 20231016
  Receipt Date: 20231016
  Transmission Date: 20240109
  Serious: No
  Sender: FDA-Public Use
  Company Number: US-JNJFOC-20231030476

PATIENT
  Age: 73 Year
  Sex: Female

DRUGS (3)
  1. UPTRAVI [Suspect]
     Active Substance: SELEXIPAG
     Indication: Pulmonary arterial hypertension
     Route: 048
     Dates: start: 202107
  2. AMBRISENTAN [Suspect]
     Active Substance: AMBRISENTAN
     Indication: Pulmonary arterial hypertension
     Route: 065
     Dates: start: 201905, end: 20230916
  3. AMBRISENTAN [Suspect]
     Active Substance: AMBRISENTAN
     Route: 065
     Dates: start: 202111

REACTIONS (2)
  - Peripheral swelling [Not Recovered/Not Resolved]
  - Dyspnoea exertional [Not Recovered/Not Resolved]
